FAERS Safety Report 24460131 (Version 1)
Quarter: 2024Q4

REPORT INFORMATION
  Report Type: Report from Study
  Country: US (occurrence: US)
  Receive Date: 20241018
  Receipt Date: 20241018
  Transmission Date: 20250114
  Serious: No
  Sender: ROCHE
  Company Number: US-ROCHE-3556055

PATIENT
  Age: 79 Year
  Sex: Male

DRUGS (18)
  1. RITUXAN [Suspect]
     Active Substance: RITUXIMAB
     Indication: Rheumatoid arthritis
     Dosage: THAN EVERY 4 MONTH
     Route: 041
     Dates: start: 2018
  2. ACTEMRA [Suspect]
     Active Substance: TOCILIZUMAB
     Indication: Rheumatoid arthritis
     Dosage: NO
     Route: 042
     Dates: start: 2012, end: 2018
  3. HYDROXYCHLOROQUINE [Suspect]
     Active Substance: HYDROXYCHLOROQUINE
     Indication: Rheumatoid arthritis
     Route: 048
     Dates: start: 2012, end: 2018
  4. SULFASALAZINE [Concomitant]
     Active Substance: SULFASALAZINE
  5. TRAMADOL [Concomitant]
     Active Substance: TRAMADOL
  6. ACETAMINOPHEN [Concomitant]
     Active Substance: ACETAMINOPHEN
  7. VALSARTAN [Concomitant]
     Active Substance: VALSARTAN
  8. CARVEDILOL [Concomitant]
     Active Substance: CARVEDILOL
  9. TRAZODONE HYDROCHLORIDE [Concomitant]
     Active Substance: TRAZODONE HYDROCHLORIDE
  10. PRASUGREL [Concomitant]
     Active Substance: PRASUGREL
  11. AMLODIPINE BESYLATE [Concomitant]
     Active Substance: AMLODIPINE BESYLATE
  12. ESOMEPRAZOLE MAGNESIUM [Concomitant]
     Active Substance: ESOMEPRAZOLE MAGNESIUM
  13. SILODOSIN [Concomitant]
     Active Substance: SILODOSIN
  14. DUTASTERIDE [Concomitant]
     Active Substance: DUTASTERIDE
  15. MISOPROSTOL [Concomitant]
     Active Substance: MISOPROSTOL
  16. METHOTREXATE [Concomitant]
     Active Substance: METHOTREXATE
  17. HYDROXYCHLOROQUINE [Concomitant]
     Active Substance: HYDROXYCHLOROQUINE
  18. DICLOFENAC [Concomitant]
     Active Substance: DICLOFENAC

REACTIONS (6)
  - Glaucoma [Not Recovered/Not Resolved]
  - Drug ineffective [Unknown]
  - Gait disturbance [Not Recovered/Not Resolved]
  - Finger deformity [Recovered/Resolved]
  - Finger deformity [Unknown]
  - Visual impairment [Unknown]

NARRATIVE: CASE EVENT DATE: 20120101
